FAERS Safety Report 4298774-6 (Version None)
Quarter: 2004Q1

REPORT INFORMATION
  Report Type: 
  Country: None (occurrence: None)
  Receive Date: 20040126
  Receipt Date: 20031020
  Transmission Date: 20041129
  Serious: No
  Sender: FDA-Public Use
  Company Number: USA031050413

PATIENT
  Sex: Male

DRUGS (11)
  1. STRATTERA [Suspect]
     Indication: ATTENTION DEFICIT/HYPERACTIVITY DISORDER
     Dosage: 40 MG/DAY
     Dates: start: 20031001
  2. ZOLOFT (SERTRALINE HYDRLOCHLORIDE) [Concomitant]
  3. METHOTREXATE SODIUM [Concomitant]
  4. FOLIC ACID [Concomitant]
  5. VIOXX [Concomitant]
  6. NEXIUM [Concomitant]
  7. PLAQUENIL [Concomitant]
  8. ZYRTEC [Concomitant]
  9. COMBIVENT [Concomitant]
  10. ADVAIR DISKUS 100/50 [Concomitant]
  11. BENICAR (BENICAR) [Concomitant]

REACTIONS (3)
  - DYSURIA [None]
  - GENITAL DISORDER MALE [None]
  - POLLAKIURIA [None]
